FAERS Safety Report 7997588-0 (Version None)
Quarter: 2011Q4

REPORT INFORMATION
  Report Type: 
  Country: None (occurrence: None)
  Receive Date: 20111221
  Receipt Date: 20111207
  Transmission Date: 20120403
  Serious: Yes (Other)
  Sender: FDA-Public Use
  Company Number: IT-CELGENEUS-083-21880-11121233

PATIENT
  Sex: Male

DRUGS (3)
  1. REVLIMID [Suspect]
     Indication: MULTIPLE MYELOMA
     Dosage: 10 MILLIGRAM
     Route: 048
     Dates: start: 20101213, end: 20110912
  2. PREDNISONE TAB [Concomitant]
     Route: 065
     Dates: start: 20101213
  3. ASPIRIN [Concomitant]
     Dosage: 100 MILLIGRAM
     Route: 065
     Dates: start: 20101213, end: 20110912

REACTIONS (1)
  - SQUAMOUS CELL CARCINOMA [None]
